FAERS Safety Report 6972787-5 (Version None)
Quarter: 2010Q3

REPORT INFORMATION
  Report Type: 
  Country: None (occurrence: None)
  Receive Date: 20100909
  Receipt Date: 20100823
  Transmission Date: 20110219
  Serious: No
  Sender: FDA-Public Use
  Company Number: US-PFIZER INC-2010106831

PATIENT
  Sex: Male
  Weight: 86.168 kg

DRUGS (3)
  1. CHANTIX [Suspect]
     Indication: SMOKING CESSATION THERAPY
     Dosage: CUTTING THE BLUE PILLS INTO HALF AND TAKING ONE HALF IN THE MORNING
     Route: 048
     Dates: start: 20100601
  2. CHANTIX [Suspect]
     Dosage: ONE HALF OF THE PILL IN THE MORNING AND ONE HALF IN THE EVENING
     Dates: end: 20100801
  3. METFORMIN [Concomitant]
     Indication: DIABETES MELLITUS
     Dosage: 500 MG, 2X/DAY
     Route: 048

REACTIONS (5)
  - ABDOMINAL DISCOMFORT [None]
  - CONSTIPATION [None]
  - FLATULENCE [None]
  - NAUSEA [None]
  - SOMNOLENCE [None]
